FAERS Safety Report 6265331-1 (Version None)
Quarter: 2009Q3

REPORT INFORMATION
  Report Type: 
  Country: None (occurrence: None)
  Receive Date: 20090713
  Receipt Date: 20090708
  Transmission Date: 20100115
  Serious: Yes (Life-Threatening)
  Sender: FDA-Public Use
  Company Number: NZ-ASTRAZENECA-2009SE04199

PATIENT
  Age: 769 Month
  Sex: Male

DRUGS (4)
  1. PRILOSEC [Suspect]
     Route: 048
     Dates: start: 19991222
  2. DIGOXIN [Interacting]
     Route: 048
  3. FUROSEMIDE [Concomitant]
     Route: 048
  4. POTASSIUM CHLORIDE [Concomitant]
     Route: 048

REACTIONS (2)
  - CARDIAC FAILURE [None]
  - DRUG INTERACTION [None]
